FAERS Safety Report 6423620-1 (Version None)
Quarter: 2009Q4

REPORT INFORMATION
  Report Type: 
  Country: None (occurrence: None)
  Receive Date: 20091102
  Receipt Date: 20091020
  Transmission Date: 20100525
  Serious: Yes (Death)
  Sender: FDA-Public Use
  Company Number: TR-PFIZER INC-2007084494

PATIENT
  Age: 45 Year

DRUGS (16)
  1. SUNITINIB MALATE [Suspect]
     Indication: METASTATIC RENAL CELL CARCINOMA
     Dosage: 50 MG, 1X/DAY
     Route: 048
     Dates: start: 20070207, end: 20070929
  2. SODIUM CHLORIDE [Concomitant]
     Route: 042
     Dates: start: 20070207, end: 20070209
  3. FUROSEMIDE [Concomitant]
     Route: 042
     Dates: start: 20070207, end: 20070209
  4. METHYLPREDNISOLONE 4MG TAB [Concomitant]
     Dates: start: 20070207, end: 20070209
  5. ZOLEDRONIC ACID [Concomitant]
     Dates: start: 20070208, end: 20070208
  6. ALLOPURINOL [Concomitant]
     Dates: start: 20070207, end: 20070220
  7. AMLODIPINE [Concomitant]
     Dates: start: 20070424
  8. SODIUM BICARBONATE IN PLASTIC CONTAINER [Concomitant]
     Dosage: UNK
     Dates: start: 20070218, end: 20070724
  9. NAPROXEN [Concomitant]
     Dates: start: 20070724
  10. PANTOPRAZOLE [Concomitant]
     Dates: start: 20070724
  11. LACTULOSE [Concomitant]
     Dates: start: 20070724
  12. ACETAMINOPHEN [Concomitant]
     Dates: start: 20070724
  13. CODEINE [Concomitant]
     Dates: start: 20070724
  14. CICLONIUM BROMIDE [Concomitant]
     Dates: start: 20070724
  15. TANTUM VERDE [Concomitant]
     Dates: start: 20070510, end: 20070515
  16. TANTUM VERDE [Concomitant]
     Dates: start: 20070710

REACTIONS (1)
  - DEATH [None]
